FAERS Safety Report 8622249 (Version 3)
Quarter: 2013Q4

REPORT INFORMATION
  Report Type: Spontaneous
  Country: US (occurrence: US)
  Receive Date: 20120619
  Receipt Date: 20131029
  Transmission Date: 20140711
  Serious: Yes (Hospitalization, Other)
  Sender: FDA-Public Use
  Company Number: US-ROCHE-1076632

PATIENT
  Age: 38 Year
  Sex: Female

DRUGS (3)
  1. BONIVA [Suspect]
     Indication: OSTEOPOROSIS
     Route: 048
     Dates: start: 20091211, end: 201012
  2. FOSAMAX [Suspect]
     Indication: OSTEOPOROSIS
     Route: 048
     Dates: start: 1998, end: 2000
  3. FOSAMAX [Suspect]
     Route: 048
     Dates: start: 20030130, end: 20100921

REACTIONS (3)
  - Femur fracture [Unknown]
  - Hand fracture [Unknown]
  - Fibromyalgia [Unknown]
